FAERS Safety Report 7540663-5 (Version None)
Quarter: 2011Q2

REPORT INFORMATION
  Report Type: 
  Country: None (occurrence: None)
  Receive Date: 20110610
  Receipt Date: 20110606
  Transmission Date: 20111010
  Serious: Yes (Hospitalization)
  Sender: FDA-Public Use
  Company Number: GXKR2010GB09502

PATIENT
  Age: 87 Year
  Sex: Male

DRUGS (8)
  1. BISOPROLOL FUMARATE [Suspect]
     Indication: HYPERTENSION
  2. OMEPRAZOLE [Concomitant]
     Dosage: 40 MG, BID
     Route: 048
  3. BISOPROLOL FUMARATE [Suspect]
     Indication: ATRIAL FIBRILLATION
     Dosage: 10 MG, QD
     Route: 048
     Dates: end: 20100811
  4. FINASTERIDE [Concomitant]
     Indication: BENIGN PROSTATIC HYPERPLASIA
     Dosage: 5 MG, QD
     Route: 048
  5. SIMVASTATIN [Concomitant]
     Indication: BLOOD CHOLESTEROL INCREASED
     Dosage: 20 MG, QD
     Route: 048
  6. BEZAFIBRATE [Concomitant]
     Indication: BLOOD CHOLESTEROL INCREASED
     Dosage: 400 MG, QD
     Route: 048
  7. HALOPERIDOL [Concomitant]
     Dosage: 500 MG, QD
     Route: 048
  8. WARFARIN SODIUM [Concomitant]

REACTIONS (5)
  - BRADYCARDIA [None]
  - SYNCOPE [None]
  - CONFUSIONAL STATE [None]
  - BLINDNESS [None]
  - AGITATION [None]
